FAERS Safety Report 5086572-5 (Version None)
Quarter: 2006Q3

REPORT INFORMATION
  Report Type: 
  Country: None (occurrence: None)
  Receive Date: 20060823
  Receipt Date: 20060821
  Transmission Date: 20061208
  Serious: Yes (Other)
  Sender: FDA-Public Use
  Company Number: US-GLAXOSMITHKLINE-A0617560A

PATIENT
  Sex: Male

DRUGS (3)
  1. PAXIL [Suspect]
     Indication: DRUG USE FOR UNKNOWN INDICATION
     Route: 048
     Dates: start: 20000101, end: 20040101
  2. STIMULANT [Suspect]
  3. LEXAPRO [Concomitant]

REACTIONS (4)
  - DRUG EFFECT DECREASED [None]
  - MAJOR DEPRESSION [None]
  - MUSCLE TIGHTNESS [None]
  - MUSCLE TWITCHING [None]
